FAERS Safety Report 18779644 (Version 1)
Quarter: 2021Q1

REPORT INFORMATION
  Report Type: Report from Study
  Country: None (occurrence: FR)
  Receive Date: 20210125
  Receipt Date: 20210125
  Transmission Date: 20210419
  Serious: Yes (Death)
  Sender: FDA-Public Use
  Company Number: FR-ABBVIE-21K-056-3743097-00

PATIENT
  Age: 80 Year
  Sex: Female

DRUGS (2)
  1. DUODOPA [Suspect]
     Active Substance: CARBIDOPA\LEVODOPA
  2. DUODOPA [Suspect]
     Active Substance: CARBIDOPA\LEVODOPA
     Indication: PARKINSON^S DISEASE
     Dosage: CONTINUOUS FLOW RATE 2.5ML/H , EXTRA DOSE 2ML
     Route: 050
     Dates: start: 201607

REACTIONS (3)
  - Loss of consciousness [Fatal]
  - General physical health deterioration [Fatal]
  - Unevaluable event [Fatal]

NARRATIVE: CASE EVENT DATE: 202101
